FAERS Safety Report 22282199 (Version 2)
Quarter: 2023Q2

REPORT INFORMATION
  Report Type: Spontaneous
  Country: MQ (occurrence: MQ)
  Receive Date: 20230504
  Receipt Date: 20230519
  Transmission Date: 20230721
  Serious: Yes (Other)
  Sender: FDA-Public Use
  Company Number: MQ-TEVA-2023-MQ-2883087

PATIENT
  Age: 84 Year
  Sex: Female

DRUGS (7)
  1. MYCOPHENOLIC ACID [Suspect]
     Active Substance: MYCOPHENOLIC ACID
     Indication: Prophylaxis against transplant rejection
     Dosage: 720 MILLIGRAM DAILY; 360MG TWICE DAILY
     Route: 065
  2. TACROLIMUS [Suspect]
     Active Substance: TACROLIMUS
     Indication: Prophylaxis against transplant rejection
     Dosage: 10 MILLIGRAM DAILY; 5MG TWICE DAILY
     Route: 065
  3. PREDNISONE [Suspect]
     Active Substance: PREDNISONE
     Indication: Prophylaxis against transplant rejection
     Dosage: 5 MILLIGRAM DAILY; 5MG ONCE DAILY
     Route: 065
  4. POSACONAZOLE [Suspect]
     Active Substance: POSACONAZOLE
     Indication: Phaeohyphomycosis
     Dosage: LOADING DOSE ON DAY 1 OF POSACONAZOLE TREATMENT , 600 MG
     Route: 065
  5. POSACONAZOLE [Suspect]
     Active Substance: POSACONAZOLE
     Dosage: DECREASED DOSE FROM DAY 2 OF POSACONAZOLE TREATMENT , 300 MG
     Route: 065
  6. APIXABAN [Concomitant]
     Active Substance: APIXABAN
     Indication: Anticoagulant therapy
     Route: 065
  7. Epixaban [Concomitant]
     Indication: Anticoagulant therapy
     Route: 065

REACTIONS (2)
  - Phaeohyphomycosis [Unknown]
  - Gastrointestinal disorder [Unknown]
